FAERS Safety Report 4821028-3 (Version None)
Quarter: 2005Q4

REPORT INFORMATION
  Report Type: 
  Country: None (occurrence: None)
  Receive Date: 20051104
  Receipt Date: 20051104
  Transmission Date: 20060501
  Serious: Yes (Life-Threatening, Disabling, Other)
  Sender: FDA-Public Use
  Company Number: None

PATIENT
  Sex: Male
  Weight: 15.8759 kg

DRUGS (1)
  1. ZYRTEC [Suspect]
     Indication: MULTIPLE ALLERGIES
     Dosage: 10 MG ONCE A DAY PO
     Route: 048
     Dates: start: 20010301, end: 20050815

REACTIONS (11)
  - ABNORMAL BEHAVIOUR [None]
  - AFFECT LABILITY [None]
  - AGGRESSION [None]
  - ANGER [None]
  - DEPRESSED MOOD [None]
  - EMOTIONAL DISORDER [None]
  - IRRITABILITY [None]
  - PRURITUS [None]
  - RASH PRURITIC [None]
  - SELF INJURIOUS BEHAVIOUR [None]
  - THINKING ABNORMAL [None]
